FAERS Safety Report 13704689 (Version 3)
Quarter: 2017Q3

REPORT INFORMATION
  Report Type: Spontaneous
  Country: US (occurrence: US)
  Receive Date: 20170630
  Receipt Date: 20170926
  Transmission Date: 20171127
  Serious: No
  Sender: FDA-Public Use
  Company Number: US-TEVA-783182ACC

PATIENT
  Sex: Female

DRUGS (2)
  1. PARAGARD T 380A [Suspect]
     Active Substance: COPPER
  2. VITAMIN D [Concomitant]
     Active Substance: CHOLECALCIFEROL

REACTIONS (2)
  - Device breakage [Unknown]
  - Embedded device [Not Recovered/Not Resolved]

NARRATIVE: CASE EVENT DATE: 20161031
